FAERS Safety Report 20680140 (Version 1)
Quarter: 2022Q2

REPORT INFORMATION
  Report Type: Spontaneous
  Country: US (occurrence: None)
  Receive Date: 20220405
  Receipt Date: 20220405
  Transmission Date: 20220721
  Serious: Yes (Disabling, Other)
  Sender: FDA-Public Use
  Company Number: None

PATIENT
  Age: 41 Year
  Sex: Female
  Weight: 72 kg

DRUGS (1)
  1. MIRTAZAPINE [Suspect]
     Active Substance: MIRTAZAPINE
     Indication: Bipolar II disorder
     Dosage: OTHER QUANTITY : 1 TABLET(S);?FREQUENCY : AT BEDTIME;?
     Route: 048
     Dates: start: 20210531, end: 20220216

REACTIONS (15)
  - Withdrawal syndrome [None]
  - Nausea [None]
  - Fatigue [None]
  - Head discomfort [None]
  - Tinnitus [None]
  - Abdominal discomfort [None]
  - Akathisia [None]
  - Insomnia [None]
  - Night sweats [None]
  - Vertigo [None]
  - Visual impairment [None]
  - Muscle spasms [None]
  - Weight increased [None]
  - Sexual dysfunction [None]
  - Blood pressure increased [None]

NARRATIVE: CASE EVENT DATE: 20220216
